FAERS Safety Report 20303192 (Version 5)
Quarter: 2022Q1

REPORT INFORMATION
  Report Type: Report from Study
  Country: JP (occurrence: JP)
  Receive Date: 20220106
  Receipt Date: 20220324
  Transmission Date: 20220424
  Serious: Yes (Life-Threatening, Other)
  Sender: FDA-Public Use
  Company Number: JP-002147023-NVSJ2019JP003582

PATIENT

DRUGS (21)
  1. PASIREOTIDE [Suspect]
     Active Substance: PASIREOTIDE
     Indication: Acromegaly
     Dosage: 40 MILLIGRAM
     Route: 030
     Dates: start: 20180215
  2. PASIREOTIDE [Suspect]
     Active Substance: PASIREOTIDE
     Dosage: 40 MILLIGRAM
     Route: 030
     Dates: start: 20180312
  3. PASIREOTIDE [Suspect]
     Active Substance: PASIREOTIDE
     Dosage: 40 MG
     Route: 030
     Dates: start: 20180412
  4. PASIREOTIDE [Suspect]
     Active Substance: PASIREOTIDE
     Dosage: 40 MG
     Route: 030
     Dates: start: 20180510
  5. PASIREOTIDE [Suspect]
     Active Substance: PASIREOTIDE
     Dosage: 40 MG
     Route: 030
     Dates: start: 20180607
  6. PASIREOTIDE [Suspect]
     Active Substance: PASIREOTIDE
     Dosage: 40 MG
     Route: 030
     Dates: start: 20180712
  7. PASIREOTIDE [Suspect]
     Active Substance: PASIREOTIDE
     Dosage: 40 MG
     Route: 030
     Dates: start: 20180809
  8. PASIREOTIDE [Suspect]
     Active Substance: PASIREOTIDE
     Dosage: 40 MG
     Route: 030
     Dates: start: 20180913
  9. PASIREOTIDE [Suspect]
     Active Substance: PASIREOTIDE
     Dosage: 40 MG
     Route: 030
     Dates: start: 20181025
  10. PASIREOTIDE [Suspect]
     Active Substance: PASIREOTIDE
     Dosage: 40 MG
     Route: 030
     Dates: start: 20181213
  11. PASIREOTIDE [Suspect]
     Active Substance: PASIREOTIDE
     Dosage: 40 MG
     Route: 030
     Dates: start: 20190130
  12. PASIREOTIDE [Suspect]
     Active Substance: PASIREOTIDE
     Dosage: 40 MG
     Route: 030
     Dates: start: 20190307
  13. PASIREOTIDE [Suspect]
     Active Substance: PASIREOTIDE
     Dosage: 40 MG
     Route: 030
     Dates: start: 20190418
  14. PASIREOTIDE [Suspect]
     Active Substance: PASIREOTIDE
     Dosage: 40 MG
     Route: 030
     Dates: start: 20190523
  15. PASIREOTIDE [Suspect]
     Active Substance: PASIREOTIDE
     Dosage: 40 MG
     Route: 030
     Dates: start: 20190704
  16. PASIREOTIDE [Suspect]
     Active Substance: PASIREOTIDE
     Dosage: 40 MG
     Route: 030
     Dates: start: 20190815
  17. PASIREOTIDE [Suspect]
     Active Substance: PASIREOTIDE
     Dosage: 40 MG
     Route: 030
     Dates: start: 20191003
  18. PASIREOTIDE [Suspect]
     Active Substance: PASIREOTIDE
     Dosage: 40 MG
     Route: 030
     Dates: start: 20191114
  19. PASIREOTIDE [Suspect]
     Active Substance: PASIREOTIDE
     Dosage: 40 MG
     Route: 030
     Dates: end: 20210819
  20. SOMAVERT [Concomitant]
     Active Substance: PEGVISOMANT
     Indication: Acromegaly
     Dosage: 20 MG, UNK
  21. LEVOTHYROXINE SODIUM [Concomitant]
     Active Substance: LEVOTHYROXINE SODIUM
     Indication: Acromegaly
     Dosage: 150 UG, UNK
     Route: 048

REACTIONS (4)
  - Hyperglycaemia [Not Recovered/Not Resolved]
  - Glycosylated haemoglobin increased [Not Recovered/Not Resolved]
  - Hyperglycaemia [Recovering/Resolving]
  - Hyperglycaemia [Not Recovered/Not Resolved]

NARRATIVE: CASE EVENT DATE: 20180809
